FAERS Safety Report 5701175-4 (Version None)
Quarter: 2008Q2

REPORT INFORMATION
  Report Type: 
  Country: None (occurrence: None)
  Receive Date: 20080410
  Receipt Date: 20080329
  Transmission Date: 20081010
  Serious: Yes (Hospitalization, Other)
  Sender: FDA-Public Use
  Company Number: US-PFIZER INC-2008014680

PATIENT
  Sex: Female
  Weight: 72.6 kg

DRUGS (18)
  1. CHANTIX [Suspect]
     Indication: SMOKING CESSATION THERAPY
     Route: 048
     Dates: start: 20080101, end: 20080201
  2. TOPAMAX [Concomitant]
     Indication: BIPOLAR DISORDER
  3. ABILIFY [Concomitant]
  4. SERAX [Concomitant]
  5. PROZAC [Concomitant]
     Indication: BIPOLAR DISORDER
  6. ATENOLOL [Concomitant]
     Indication: MIGRAINE
  7. ATENOLOL [Concomitant]
     Indication: MYOCARDIAL INFARCTION
  8. DIOVAN [Concomitant]
  9. LYRICA [Concomitant]
  10. DARVON [Concomitant]
  11. HYDROCODONE BITARTRATE [Concomitant]
  12. LIDODERM [Concomitant]
  13. FLONASE [Concomitant]
  14. CYCLOSPORINE [Concomitant]
  15. ALLERX [Concomitant]
  16. METFORMIN HCL [Concomitant]
  17. LITHIUM CARBONATE [Concomitant]
  18. VITAMIN B-12 [Concomitant]

REACTIONS (17)
  - ANXIETY [None]
  - BACK PAIN [None]
  - BIPOLAR DISORDER [None]
  - DIABETES MELLITUS [None]
  - HYPERTENSION [None]
  - HYPOMANIA [None]
  - LOSS OF EMPLOYMENT [None]
  - MENTAL DISORDER [None]
  - MUSCULOSKELETAL PAIN [None]
  - MYOCARDIAL INFARCTION [None]
  - NEPHROLITHIASIS [None]
  - NEUROPATHY PERIPHERAL [None]
  - OEDEMA [None]
  - PALPITATIONS [None]
  - PANCREATITIS RELAPSING [None]
  - PARALYSIS [None]
  - POST-TRAUMATIC STRESS DISORDER [None]
